FAERS Safety Report 6481588-6 (Version None)
Quarter: 2009Q4

REPORT INFORMATION
  Report Type: 
  Country: None (occurrence: None)
  Receive Date: 20091123
  Receipt Date: 20091002
  Transmission Date: 20100525
  Serious: No
  Sender: FDA-Public Use
  Company Number: 8052910

PATIENT
  Sex: Female

DRUGS (1)
  1. CIMZIA [Suspect]
     Dosage: SC
     Route: 058
     Dates: start: 20090101

REACTIONS (5)
  - INJECTION SITE REACTION [None]
  - PARAESTHESIA ORAL [None]
  - PRURITUS GENERALISED [None]
  - RASH MACULAR [None]
  - RASH PAPULAR [None]
